FAERS Safety Report 7727203-2 (Version None)
Quarter: 2011Q3

REPORT INFORMATION
  Report Type: 
  Country: None (occurrence: None)
  Receive Date: 20110902
  Receipt Date: 20110818
  Transmission Date: 20111222
  Serious: Yes (Other)
  Sender: FDA-Public Use
  Company Number: US-BAYER-2011-076307

PATIENT
  Age: 70 Year
  Sex: Male

DRUGS (7)
  1. VIAGRA [Suspect]
     Dosage: DOSE: 100
  2. KETOCONAZOLE [Suspect]
     Dosage: DOSE: 2%
     Route: 061
  3. FLUTICASONE PROPIONATE [Suspect]
     Dosage: 2 PUFFS BID
  4. NEXIUM [Suspect]
     Dosage: 40 MG, BID
  5. ADVAIR DISKUS 100/50 [Suspect]
     Dosage: DOSE: 50/100
  6. ACETYLSALICYLIC ACID SRT [Suspect]
     Dosage: 81 MG, QD
  7. FLOMAX [Suspect]
     Dosage: 0.4 MG, QD
     Route: 048

REACTIONS (10)
  - ERECTILE DYSFUNCTION [None]
  - DIVERTICULUM [None]
  - BENIGN PROSTATIC HYPERPLASIA [None]
  - HELICOBACTER INFECTION [None]
  - PULMONARY GRANULOMA [None]
  - HAEMORRHOIDS [None]
  - CHRONIC OBSTRUCTIVE PULMONARY DISEASE [None]
  - GASTROOESOPHAGEAL REFLUX DISEASE [None]
  - ARTHRITIS [None]
  - SWELLING FACE [None]
